FAERS Safety Report 14208785 (Version 2)
Quarter: 2018Q1

REPORT INFORMATION
  Report Type: Spontaneous
  Country: US (occurrence: US)
  Receive Date: 20171121
  Receipt Date: 20180117
  Transmission Date: 20180508
  Serious: No
  Sender: FDA-Public Use
  Company Number: US-JNJFOC-20171008890

PATIENT
  Age: 81 Year
  Sex: Female
  Weight: 65.77 kg

DRUGS (18)
  1. HYDREA [Concomitant]
     Active Substance: HYDROXYUREA
     Dosage: 6 YEARS
     Route: 048
  2. LUTEIN [Concomitant]
     Active Substance: LUTEIN
     Dosage: ONCE A DAY EVERY DAY AND ONE AT NIGHT ON MONDAY, WEDNESDAY, FRIDAY
     Route: 065
  3. LOSARTAN. [Concomitant]
     Active Substance: LOSARTAN
     Dosage: ONCE A DAY EVERY DAY AND ONE AT NIGHT ON MONDAY, WEDNESDAY, FRIDAY
     Route: 065
  4. COLACE [Concomitant]
     Active Substance: DOCUSATE SODIUM
     Route: 048
  5. BETAPACE [Concomitant]
     Active Substance: SOTALOL HYDROCHLORIDE
     Dosage: ONCE A DAY EVERY DAY AND ONE AT NIGHT ON MONDAY, WEDNESDAY, FRIDAY
     Route: 048
  6. VITAMIN D [Concomitant]
     Active Substance: CHOLECALCIFEROL
     Dosage: ONCE A DAY EVERY DAY AND ONE AT NIGHT ON MONDAY, WEDNESDAY, FRIDAY
     Route: 048
     Dates: start: 20101014
  7. FISH OIL [Concomitant]
     Active Substance: FISH OIL
     Dosage: ONCE A DAY EVERY DAY AND ONE AT NIGHT ON MONDAY, WEDNESDAY, FRIDAY
     Route: 048
  8. CELEXA [Concomitant]
     Active Substance: CITALOPRAM HYDROBROMIDE
     Route: 048
  9. LIDEX [Concomitant]
     Active Substance: FLUOCINONIDE
     Route: 061
  10. VALTREX [Concomitant]
     Active Substance: VALACYCLOVIR HYDROCHLORIDE
     Route: 048
  11. BABY ASPIRIN [Concomitant]
     Active Substance: ASPIRIN
     Route: 048
  12. ATIVAN [Concomitant]
     Active Substance: LORAZEPAM
     Indication: ANXIETY
     Route: 048
  13. COZAAR [Concomitant]
     Active Substance: LOSARTAN POTASSIUM
     Route: 048
  14. KENALOG [Concomitant]
     Active Substance: TRIAMCINOLONE ACETONIDE
     Route: 061
  15. XARELTO [Suspect]
     Active Substance: RIVAROXABAN
     Indication: ANTICOAGULANT THERAPY
     Route: 048
     Dates: start: 20151013
  16. TYLENOL [Concomitant]
     Active Substance: ACETAMINOPHEN
     Indication: PAIN
     Route: 048
  17. ROBAXIN [Concomitant]
     Active Substance: METHOCARBAMOL
     Indication: MUSCLE SPASMS
     Route: 048
  18. ROBAXIN [Concomitant]
     Active Substance: METHOCARBAMOL
     Indication: PAIN
     Route: 048

REACTIONS (3)
  - Alopecia [Not Recovered/Not Resolved]
  - Hair injury [Not Recovered/Not Resolved]
  - Pruritus [Not Recovered/Not Resolved]

NARRATIVE: CASE EVENT DATE: 201612
